FAERS Safety Report 13088397 (Version 1)
Quarter: 2017Q1

REPORT INFORMATION
  Report Type: Report from Study
  Country: US (occurrence: US)
  Receive Date: 20170105
  Receipt Date: 20170105
  Transmission Date: 20170428
  Serious: Yes (Other)
  Sender: FDA-Public Use
  Company Number: US-JNJFOC-20161226035

PATIENT
  Age: 62 Year
  Sex: Female
  Weight: 80.29 kg

DRUGS (2)
  1. HYDROXINE [Suspect]
     Active Substance: HYDROXYZINE HYDROCHLORIDE
     Indication: RASH PRURITIC
     Route: 065
  2. STELARA [Suspect]
     Active Substance: USTEKINUMAB
     Indication: CROHN^S DISEASE
     Route: 042
     Dates: start: 20161212

REACTIONS (5)
  - Haematochezia [Not Recovered/Not Resolved]
  - Pruritus [Not Recovered/Not Resolved]
  - Vision blurred [Not Recovered/Not Resolved]
  - Dizziness [Not Recovered/Not Resolved]
  - Rash [Not Recovered/Not Resolved]

NARRATIVE: CASE EVENT DATE: 201612
